FAERS Safety Report 14217215 (Version 1)
Quarter: 2017Q4

REPORT INFORMATION
  Report Type: Report from Study
  Country: None (occurrence: GB)
  Receive Date: 20171123
  Receipt Date: 20171123
  Transmission Date: 20180321
  Serious: Yes (Hospitalization)
  Sender: FDA-Public Use
  Company Number: GB-ABBVIE-17K-167-2171004-00

PATIENT
  Age: 71 Year
  Sex: Male
  Weight: 74.7 kg

DRUGS (1)
  1. HUMIRA [Suspect]
     Active Substance: ADALIMUMAB
     Indication: PSORIASIS
     Route: 058
     Dates: start: 20120103, end: 20170712

REACTIONS (13)
  - Disorientation [Recovered/Resolved]
  - Dizziness [Recovered/Resolved with Sequelae]
  - Spinal disorder [Recovered/Resolved]
  - Respiratory acidosis [Recovered/Resolved]
  - Sinus node dysfunction [Recovered/Resolved with Sequelae]
  - Restrictive pulmonary disease [Recovered/Resolved]
  - Atrial fibrillation [Recovered/Resolved with Sequelae]
  - Supraventricular extrasystoles [Recovered/Resolved with Sequelae]
  - Atrial fibrillation [Recovered/Resolved]
  - Hypotension [Recovered/Resolved]
  - Cough [Recovered/Resolved]
  - Tachycardia [Recovered/Resolved]
  - Chronic obstructive pulmonary disease [Recovered/Resolved]

NARRATIVE: CASE EVENT DATE: 20151023
